FAERS Safety Report 4545188-7 (Version None)
Quarter: 2004Q4

REPORT INFORMATION
  Report Type: 
  Country: None (occurrence: None)
  Receive Date: 20041222
  Receipt Date: 20041018
  Transmission Date: 20050328
  Serious: Yes (Hospitalization, Other)
  Sender: FDA-Public Use
  Company Number: USA040876617

PATIENT
  Age: 45 Year
  Sex: Male

DRUGS (4)
  1. HUMULIN N [Suspect]
     Dates: start: 20000101
  2. HUMULIN R [Suspect]
     Dates: start: 20000101
  3. HUMALOG [Suspect]
     Dates: start: 20040917
  4. ILETIN [Suspect]
     Dates: start: 20040917

REACTIONS (10)
  - CELLULITIS [None]
  - COMA [None]
  - EATING DISORDER [None]
  - HYPOGLYCAEMIA [None]
  - INFECTION IN AN IMMUNOCOMPROMISED HOST [None]
  - KELOID SCAR [None]
  - PAIN [None]
  - POSTOPERATIVE INFECTION [None]
  - THERAPEUTIC RESPONSE DELAYED [None]
  - ULCER HAEMORRHAGE [None]
